FAERS Safety Report 13088501 (Version 1)
Quarter: 2017Q1

REPORT INFORMATION
  Report Type: Spontaneous
  Country: US (occurrence: US)
  Receive Date: 20170104
  Receipt Date: 20170104
  Transmission Date: 20170428
  Serious: Yes (Hospitalization)
  Sender: FDA-Public Use
  Company Number: None

PATIENT
  Age: 64 Year
  Sex: Male
  Weight: 70.7 kg

DRUGS (1)
  1. VIMPAT [Suspect]
     Active Substance: LACOSAMIDE
     Indication: SEIZURE
     Route: 048
     Dates: start: 20160904, end: 20160906

REACTIONS (5)
  - Tremor [None]
  - Gaze palsy [None]
  - Speech disorder [None]
  - Cognitive disorder [None]
  - Encephalopathy [None]

NARRATIVE: CASE EVENT DATE: 20160904
